FAERS Safety Report 8839654 (Version 8)
Quarter: 2013Q4

REPORT INFORMATION
  Report Type: Spontaneous
  Country: US (occurrence: US)
  Receive Date: 20121015
  Receipt Date: 20131004
  Transmission Date: 20140711
  Serious: Yes (Hospitalization)
  Sender: FDA-Public Use
  Company Number: US-B.I. PHARMACEUTICALS,INC./RIDGEFIELD-2012-BP-24881BP

PATIENT
  Age: 82 Year
  Sex: Female
  Weight: 79.38 kg

DRUGS (23)
  1. PRADAXA [Suspect]
     Indication: HEART RATE IRREGULAR
     Dosage: 300 MG
     Route: 048
     Dates: start: 20110907, end: 20111001
  2. PRADAXA [Suspect]
     Indication: ATRIAL FIBRILLATION
  3. DILTIAZEM [Concomitant]
     Dosage: 240 MG
     Route: 048
  4. LISINOPRIL [Concomitant]
     Dosage: 20 MG
     Route: 048
  5. GLIMEPIRIDE [Concomitant]
     Dosage: 4 MG
     Route: 048
     Dates: start: 2010
  6. SYNTHROID [Concomitant]
     Dosage: 200 MCG
     Route: 048
     Dates: start: 1963
  7. MIRALAX [Concomitant]
     Dosage: 17 G
     Route: 048
  8. CALCIUM AND VITAMIN D [Concomitant]
     Route: 048
  9. NITROGLYCERIN [Concomitant]
     Indication: CHEST PAIN
     Route: 060
  10. FLEXERIL [Concomitant]
  11. ASPIRIN [Concomitant]
     Dosage: 81 MG
  12. TAZTIA XT [Concomitant]
     Dates: start: 2010
  13. OMEPRAZOLE [Concomitant]
     Dosage: 20 MG
     Dates: start: 2010, end: 2012
  14. LORATADINE [Concomitant]
     Dosage: 10 MG
  15. CITRACAL [Concomitant]
  16. TYLENOL #3 [Concomitant]
     Indication: PAIN
  17. REGLAN [Concomitant]
  18. CLOBETASOL PROPIONATE [Concomitant]
  19. SUCRALFATE [Concomitant]
  20. FEXOFENADINE [Concomitant]
  21. ZOFRAN [Concomitant]
  22. ATIVAN [Concomitant]
  23. NOVOLIN [Concomitant]

REACTIONS (7)
  - Gastrointestinal haemorrhage [Unknown]
  - Coagulopathy [Unknown]
  - Shock haemorrhagic [Unknown]
  - Rectal haemorrhage [Unknown]
  - Epistaxis [Recovered/Resolved]
  - Epistaxis [Recovered/Resolved]
  - Contusion [Unknown]
